FAERS Safety Report 6331918-0 (Version None)
Quarter: 2009Q3

REPORT INFORMATION
  Report Type: 
  Country: None (occurrence: None)
  Receive Date: 20090826
  Receipt Date: 20090819
  Transmission Date: 20100115
  Serious: Yes (Hospitalization)
  Sender: FDA-Public Use
  Company Number: TPA2009A02368

PATIENT
  Age: 54 Year
  Sex: Female
  Weight: 115.6672 kg

DRUGS (6)
  1. ACTOS [Suspect]
     Indication: TYPE 2 DIABETES MELLITUS
     Dosage: 45 MG, 1 IN 1 D, PER ORAL
     Route: 048
     Dates: start: 19990101
  2. XANAX [Concomitant]
  3. SUCRALFATE [Concomitant]
  4. METFORMIN HCL [Concomitant]
  5. LANTUS [Concomitant]
  6. BENICAR [Concomitant]

REACTIONS (5)
  - CORONARY ARTERY OCCLUSION [None]
  - GASTRIC ULCER [None]
  - RENAL FAILURE [None]
  - ROTATOR CUFF SYNDROME [None]
  - VISION BLURRED [None]
